FAERS Safety Report 16081856 (Version 3)
Quarter: 2022Q3

REPORT INFORMATION
  Report Type: Spontaneous
  Country: CA (occurrence: CA)
  Receive Date: 20190317
  Receipt Date: 20220714
  Transmission Date: 20221027
  Serious: Yes (Hospitalization, Other)
  Sender: FDA-Public Use
  Company Number: CA-009507513-1903CAN006474

PATIENT
  Age: 54 Year
  Sex: Male

DRUGS (1)
  1. ZEPATIER [Suspect]
     Active Substance: ELBASVIR\GRAZOPREVIR
     Indication: Hepatitis C
     Dosage: 1 EVERY 1 DAY(S)
     Route: 048
     Dates: start: 20171213

REACTIONS (2)
  - Alcohol withdrawal syndrome [Unknown]
  - Poisoning [Unknown]

NARRATIVE: CASE EVENT DATE: 20171229
